FAERS Safety Report 6091209-2 (Version None)
Quarter: 2009Q1

REPORT INFORMATION
  Report Type: 
  Country: None (occurrence: None)
  Receive Date: 20090225
  Receipt Date: 20090223
  Transmission Date: 20090719
  Serious: Yes (Hospitalization)
  Sender: FDA-Public Use
  Company Number: AU-BRISTOL-MYERS SQUIBB COMPANY-14517957

PATIENT
  Age: 86 Year
  Sex: Female

DRUGS (8)
  1. KARVEA TABS [Suspect]
     Route: 048
     Dates: end: 20070220
  2. ALDACTONE [Suspect]
     Dosage: TABS
     Route: 048
     Dates: end: 20070220
  3. COLCHICINE [Suspect]
     Dosage: TABS
     Route: 048
  4. LASIX [Suspect]
     Dosage: TABS
     Route: 048
     Dates: end: 20070220
  5. CARVEDILOL [Concomitant]
     Dosage: CARVEDILOL HCL.TABS
     Route: 048
  6. LATANOPROST [Concomitant]
     Dosage: EYE DROPS.
     Route: 047
  7. RABEPRAZOLE SODIUM [Concomitant]
     Dosage: TABS
     Route: 048
  8. TEMAZE [Concomitant]
     Dosage: TABS
     Route: 048

REACTIONS (4)
  - DEHYDRATION [None]
  - LETHARGY [None]
  - NAUSEA [None]
  - RENAL FAILURE CHRONIC [None]
